FAERS Safety Report 13467009 (Version 2)
Quarter: 2017Q2

REPORT INFORMATION
  Report Type: Spontaneous
  Country: BY (occurrence: BY)
  Receive Date: 20170421
  Receipt Date: 20170427
  Transmission Date: 20170830
  Serious: Yes (Other)
  Sender: FDA-Public Use
  Company Number: BY-ABBVIE-17P-209-1949302-00

PATIENT
  Age: 54 Year
  Sex: Male

DRUGS (1)
  1. DEPAKINE CHRONOSPHERE [Suspect]
     Active Substance: VALPROIC ACID
     Indication: EPILEPSY
     Route: 065
     Dates: start: 20160406, end: 20160411

REACTIONS (5)
  - Seizure [Recovering/Resolving]
  - Disorientation [Recovering/Resolving]
  - Dizziness [Recovering/Resolving]
  - Headache [Recovering/Resolving]
  - Drug ineffective [Recovering/Resolving]
